FAERS Safety Report 10025471 (Version 1)
Quarter: 2014Q1

REPORT INFORMATION
  Report Type: Spontaneous
  Country: US (occurrence: None)
  Receive Date: 20140304
  Receipt Date: 20140304
  Transmission Date: 20141002
  Serious: Yes (Death)
  Sender: FDA-Public Use
  Company Number: RB-53633-2013

PATIENT
  Sex: Male

DRUGS (6)
  1. SUBOXONE [Suspect]
     Indication: PRODUCT USED FOR UNKNOWN INDICATION
     Dosage: DOSE DETAILS UNKNOWN; TOOK 2 PILLS UNKNOWN
     Dates: start: 20120415, end: 20120415
  2. LIBRIUM [Suspect]
     Indication: PRODUCT USED FOR UNKNOWN INDICATION
     Dosage: DOSE DETAIL UNKNOWN
     Dates: start: 20120412, end: 201204
  3. TEMAZEPAM [Suspect]
     Indication: PRODUCT USED FOR UNKNOWN INDICATION
     Dosage: DOSE DETAIL UNKNOWN
     Dates: start: 20120412, end: 201204
  4. PHENOBARBITAL [Suspect]
     Indication: PRODUCT USED FOR UNKNOWN INDICATION
     Dosage: DOSE DETAIL UNKNOWN
     Dates: start: 20120412, end: 201204
  5. CLONIDINE [Suspect]
     Indication: PRODUCT USED FOR UNKNOWN INDICATION
     Dosage: DOSE DETAIL UNKNOWN
  6. DIAZEPAM [Suspect]
     Indication: PRODUCT USED FOR UNKNOWN INDICATION
     Dosage: DOSE DETAIL UNKNOWN

REACTIONS (4)
  - Substance abuse [None]
  - Toxicity to various agents [None]
  - Cardiac hypertrophy [None]
  - Gastritis [None]
